FAERS Safety Report 7319358-9 (Version None)
Quarter: 2011Q1

REPORT INFORMATION
  Report Type: 
  Country: None (occurrence: None)
  Receive Date: 20110228
  Receipt Date: 20100211
  Transmission Date: 20110831
  Serious: No
  Sender: FDA-Public Use
  Company Number: A0844601A

PATIENT
  Age: 65 Year
  Sex: Female

DRUGS (3)
  1. ZOLPIDEM [Suspect]
     Route: 065
  2. LAMICTAL [Suspect]
     Indication: EPILEPSY
     Route: 065
  3. VESICARE [Suspect]
     Route: 065

REACTIONS (5)
  - DRUG INTERACTION [None]
  - INCORRECT DOSE ADMINISTERED [None]
  - DIPLOPIA [None]
  - BALANCE DISORDER [None]
  - AMNESIA [None]
